FAERS Safety Report 11115793 (Version 1)
Quarter: 2015Q2

REPORT INFORMATION
  Report Type: Spontaneous
  Country: US (occurrence: None)
  Receive Date: 20150514
  Receipt Date: 20150514
  Transmission Date: 20150821
  Serious: No
  Sender: FDA-Public Use
  Company Number: None

PATIENT
  Age: 49 Year
  Sex: Female

DRUGS (8)
  1. PHENTERMINE [Concomitant]
     Active Substance: PHENTERMINE
  2. LOSARTAN [Concomitant]
     Active Substance: LOSARTAN
  3. TECFIDERA [Suspect]
     Active Substance: DIMETHYL FUMARATE
     Indication: MULTIPLE SCLEROSIS
     Dosage: 1 CAPSULE BID ORAL
     Route: 048
     Dates: start: 20150504, end: 20150513
  4. MODAFINIL. [Concomitant]
     Active Substance: MODAFINIL
  5. AZURETTE [Concomitant]
     Active Substance: DESOGESTREL\ETHINYL ESTRADIOL
  6. AMLODIPINE [Concomitant]
     Active Substance: AMLODIPINE BESYLATE
  7. IBUPROFEN. [Concomitant]
     Active Substance: IBUPROFEN
  8. LEVOTHYROXINE [Concomitant]
     Active Substance: LEVOTHYROXINE

REACTIONS (1)
  - Abnormal faeces [None]

NARRATIVE: CASE EVENT DATE: 20150513
